FAERS Safety Report 20633224 (Version 2)
Quarter: 2022Q2

REPORT INFORMATION
  Report Type: Spontaneous
  Country: JP (occurrence: JP)
  Receive Date: 20220324
  Receipt Date: 20220418
  Transmission Date: 20220721
  Serious: Yes (Other)
  Sender: FDA-Public Use
  Company Number: JP-GUERBET-JP-20220032

PATIENT
  Age: 82 Year
  Sex: Female

DRUGS (2)
  1. LIPIODOL [Suspect]
     Active Substance: ETHIODIZED OIL
     Indication: Transcatheter arterial chemoembolisation
     Dosage: LIPIODOL IN MIXTURE WITH IA-CALL
     Route: 013
  2. CISPLATIN [Suspect]
     Active Substance: CISPLATIN
     Indication: Transcatheter arterial chemoembolisation
     Dosage: LIPIODOL IN MIXTURE WITH IA-CALL
     Route: 013

REACTIONS (5)
  - Liver abscess [Recovered/Resolved]
  - Renal impairment [Recovered/Resolved]
  - Platelet count decreased [Recovered/Resolved]
  - Pyrexia [Recovered/Resolved]
  - Product use in unapproved indication [Recovered/Resolved]
